FAERS Safety Report 20404048 (Version 2)
Quarter: 2022Q2

REPORT INFORMATION
  Report Type: Report from Study
  Country: FR (occurrence: FR)
  Receive Date: 20220131
  Receipt Date: 20220401
  Transmission Date: 20220720
  Serious: Yes (Other)
  Sender: FDA-Public Use
  Company Number: FR-JNJFOC-20220145614

PATIENT

DRUGS (19)
  1. SIRTURO [Suspect]
     Active Substance: BEDAQUILINE FUMARATE
     Indication: Tuberculosis
     Route: 048
  2. SIRTURO [Suspect]
     Active Substance: BEDAQUILINE FUMARATE
     Indication: Tuberculosis
  3. LEVAQUIN [Suspect]
     Active Substance: LEVOFLOXACIN
     Indication: Tuberculosis
     Route: 065
  4. DELAMANID [Suspect]
     Active Substance: DELAMANID
     Indication: Tuberculosis
     Route: 065
  5. DELAMANID [Suspect]
     Active Substance: DELAMANID
     Indication: Tuberculosis
  6. LINEZOLID [Suspect]
     Active Substance: LINEZOLID
     Indication: Tuberculosis
     Route: 065
  7. CLOFAZIMINE [Suspect]
     Active Substance: CLOFAZIMINE
     Indication: Tuberculosis
     Route: 065
  8. CYCLOSERINE [Suspect]
     Active Substance: CYCLOSERINE
     Indication: Tuberculosis
     Route: 065
  9. MOXIFLOXACIN [Suspect]
     Active Substance: MOXIFLOXACIN
     Indication: Tuberculosis
     Route: 065
  10. PROTIONAMIDE [Suspect]
     Active Substance: PROTIONAMIDE
     Indication: Tuberculosis
     Route: 065
  11. ETHIONAMIDE [Suspect]
     Active Substance: ETHIONAMIDE
     Indication: Tuberculosis
     Route: 065
  12. KANAMYCIN [Suspect]
     Active Substance: KANAMYCIN A SULFATE
     Indication: Tuberculosis
     Route: 065
  13. CAPREOMYCIN [Suspect]
     Active Substance: CAPREOMYCIN
     Indication: Tuberculosis
     Route: 065
  14. AMIKACIN [Suspect]
     Active Substance: AMIKACIN
     Indication: Tuberculosis
     Route: 065
  15. AMINOSALICYLIC ACID [Suspect]
     Active Substance: AMINOSALICYLIC ACID
     Indication: Tuberculosis
  16. IMIPENEM [Suspect]
     Active Substance: IMIPENEM
     Indication: Tuberculosis
  17. CILASTATIN [Suspect]
     Active Substance: CILASTATIN
     Indication: Tuberculosis
     Route: 065
  18. MEROPENEM [Suspect]
     Active Substance: MEROPENEM
     Indication: Tuberculosis
  19. PYRAZINAMIDE [Suspect]
     Active Substance: PYRAZINAMIDE
     Indication: Tuberculosis
     Route: 065

REACTIONS (1)
  - Electrocardiogram QT prolonged [Unknown]
